FAERS Safety Report 4913077-1 (Version None)
Quarter: 2006Q1

REPORT INFORMATION
  Report Type: 
  Country: None (occurrence: None)
  Receive Date: 20060210
  Receipt Date: 20060130
  Transmission Date: 20060701
  Serious: Yes (Other)
  Sender: FDA-Public Use
  Company Number: 2006015733

PATIENT
  Age: 83 Year
  Sex: Male

DRUGS (13)
  1. LIPITOR [Suspect]
     Indication: BLOOD CHOLESTEROL INCREASED
     Dosage: 20 MG (20 MG, 1 IN 1 D)
  2. FLOMAX [Concomitant]
  3. PREVACID [Concomitant]
  4. ASACOL [Concomitant]
  5. ALPRAZOLAM [Concomitant]
  6. FOSINOPRIL SODIUM [Concomitant]
  7. FOLIC ACID [Concomitant]
  8. ASPIRIN [Concomitant]
  9. MIRTAZAPINE [Concomitant]
  10. AVODART [Concomitant]
  11. DETROL LA [Concomitant]
  12. PREDNISONE TAB [Concomitant]
  13. METROGEL [Concomitant]

REACTIONS (3)
  - GASTROINTESTINAL DISORDER [None]
  - MUSCULAR WEAKNESS [None]
  - ROTATOR CUFF SYNDROME [None]
